FAERS Safety Report 24304570 (Version 1)
Quarter: 2024Q3

REPORT INFORMATION
  Report Type: Other
  Country: US (occurrence: US)
  Receive Date: 20240910
  Receipt Date: 20240910
  Transmission Date: 20241017
  Serious: Yes (Other)
  Sender: SIGMA TAU
  Company Number: US-LEADIANT GMBH-2023STPI000328

PATIENT
  Sex: Male
  Weight: 27.5 kg

DRUGS (11)
  1. MATULANE [Suspect]
     Active Substance: PROCARBAZINE HYDROCHLORIDE
     Indication: Brain neoplasm
     Dosage: 50 MILLIGRAMS, 1 CAPSULE (50MG TOTAL) EVERY 6 HOURS FOR 1 DAY EVERY 28-DAY CYCLE
     Route: 048
     Dates: start: 20230520
  2. MATULANE [Suspect]
     Active Substance: PROCARBAZINE HYDROCHLORIDE
     Dosage: 50 MILLIGRAMS, 4 DOSES (200MG TOTAL) EVERY 6 HOURS DAILY ON DAY 2 TO 3 OF CYCLE
  3. LOMUSTINE [Concomitant]
     Active Substance: LOMUSTINE
     Indication: Brain neoplasm
     Dosage: 111.1  MILLIGRAM, DAY 3 OF EACH 28 DAY CYCLE
  4. LOMUSTINE [Concomitant]
     Active Substance: LOMUSTINE
     Dosage: 40 MILLIGRAM, TAKE 2 CAPSULES (80 MG TOTAL) ON DAY 3 OF EACH 42 DAY CYCLE
  5. THIOGUANINE [Concomitant]
     Active Substance: THIOGUANINE
     Indication: Brain neoplasm
     Dosage: 30.3 MILLIGRAM, DAY 0 TO 3 OF EACH 28 DAY CYCLE
  6. VINCRISTINE [Concomitant]
     Active Substance: VINCRISTINE
     Indication: Brain neoplasm
     Dosage: 1.5 MILLIGRAM, DAY 8 TO 15 OF EACH 28 DAY CYCLE
  7. CITALOPRAM [Concomitant]
     Active Substance: CITALOPRAM\CITALOPRAM HYDROBROMIDE
     Dosage: 10 MILLIGRAM, 1 TABLET DAILY
     Route: 048
  8. PERIACTIN [Concomitant]
     Active Substance: CYPROHEPTADINE HYDROCHLORIDE
     Dosage: 4 MILLIGRAM, 1 TABLET TWICE A DAY
     Route: 048
  9. SCOPOLAMINE N-OXIDE [Concomitant]
     Active Substance: SCOPOLAMINE N-OXIDE
     Dosage: 1 PATCH TRANSDERMALLY EVERY 72 HOUR AS NEEDED FOR NAUSEA
     Route: 062
  10. SULFAMETHOXAZOLE\TRIMETHOPRIM [Concomitant]
     Active Substance: SULFAMETHOXAZOLE\TRIMETHOPRIM
     Dosage: 1 TABLET EVERY MONDAY AND TUESDAY
     Route: 048
  11. CHOLECALCIFEROL [Concomitant]
     Active Substance: CHOLECALCIFEROL
     Dosage: 1 TABLET DAILY
     Route: 048

REACTIONS (1)
  - Platelet count decreased [Recovered/Resolved]
